FAERS Safety Report 8729759 (Version 2)
Quarter: 2012Q4

REPORT INFORMATION
  Report Type: 
  Country: US (occurrence: US)
  Receive Date: 20120817
  Receipt Date: 20120910
  Transmission Date: 20130627
  Serious: No
  Sender: FDA-Public Use
  Company Number: US-AMGEN-USASP2012050691

PATIENT

DRUGS (1)
  1. PROLIA [Suspect]
     Indication: PRODUCT USED FOR UNKNOWN INDICATION
     Dosage: 60 mg, UNK
     Route: 058
     Dates: start: 20120604

REACTIONS (1)
  - Rash maculo-papular [Recovered/Resolved]
